FAERS Safety Report 7391129-7 (Version None)
Quarter: 2011Q2

REPORT INFORMATION
  Report Type: 
  Country: None (occurrence: None)
  Receive Date: 20110404
  Receipt Date: 20110324
  Transmission Date: 20111010
  Serious: Yes (Hospitalization)
  Sender: FDA-Public Use
  Company Number: ES-B.I. PHARMACEUTICALS,INC./RIDGEFIELD-2011-ES-00068ES

PATIENT
  Sex: Female

DRUGS (6)
  1. PRADAXA [Suspect]
     Indication: THROMBOSIS PROPHYLAXIS
     Dosage: 75 MG
     Route: 048
     Dates: start: 20110309
  2. RIVOTRIL [Concomitant]
     Dosage: 2.5 MG
  3. PANTECTA [Concomitant]
     Dosage: 40 MG
  4. HEPARINA [Concomitant]
  5. FLUOXETINA [Concomitant]
     Dosage: 20 MG
     Route: 048
  6. LERCADIP [Concomitant]
     Dosage: 20 MG

REACTIONS (1)
  - CONVULSION [None]
